FAERS Safety Report 11635359 (Version 1)
Quarter: 2015Q4

REPORT INFORMATION
  Report Type: Spontaneous
  Country: CA (occurrence: CA)
  Receive Date: 20151016
  Receipt Date: 20151016
  Transmission Date: 20160304
  Serious: No
  Sender: FDA-Public Use
  Company Number: CA-GLENMARK PHARMACEUTICALS INC, USA.-2015GMK016391

PATIENT
  Age: 55 Year
  Sex: Female

DRUGS (7)
  1. METHADONE [Concomitant]
     Active Substance: METHADONE HYDROCHLORIDE
     Indication: PELVIC PAIN
     Dosage: UNK
     Route: 058
  2. KETAMINE [Concomitant]
     Active Substance: KETAMINE
     Indication: PELVIC PAIN
     Dosage: UNK
     Route: 058
  3. HYDROMORPHONE [Concomitant]
     Active Substance: HYDROMORPHONE
     Dosage: UNK
  4. GABAPENTIN. [Suspect]
     Active Substance: GABAPENTIN
     Indication: PELVIC PAIN
     Dosage: UNK
     Route: 058
  5. DEXMEDETOMIDINE HCL [Concomitant]
     Indication: PELVIC PAIN
     Dosage: UNK
  6. SUFENTANIL [Concomitant]
     Active Substance: SUFENTANIL
     Indication: PELVIC PAIN
     Dosage: UNK
  7. HYDROMORPHONE [Concomitant]
     Active Substance: HYDROMORPHONE
     Indication: PELVIC PAIN
     Dosage: UNK
     Route: 058

REACTIONS (1)
  - Drug ineffective for unapproved indication [Unknown]
